FAERS Safety Report 20566722 (Version 1)
Quarter: 2022Q1

REPORT INFORMATION
  Report Type: Spontaneous
  Country: TR (occurrence: TR)
  Receive Date: 20220308
  Receipt Date: 20220308
  Transmission Date: 20220423
  Serious: Yes (Other)
  Sender: FDA-Public Use
  Company Number: TR-MLMSERVICE-20220216-3378178-1

PATIENT
  Age: 22 Month
  Sex: Male

DRUGS (1)
  1. CYCLOSPORINE [Suspect]
     Active Substance: CYCLOSPORINE
     Indication: Acute myeloid leukaemia
     Route: 042

REACTIONS (3)
  - Hypoaldosteronism [Recovered/Resolved]
  - Hyponatraemia [Recovered/Resolved]
  - Hyperkalaemia [Recovered/Resolved]
